FAERS Safety Report 24746154 (Version 1)
Quarter: 2024Q4

REPORT INFORMATION
  Report Type: Report from Study
  Country: BR (occurrence: BR)
  Receive Date: 20241218
  Receipt Date: 20241218
  Transmission Date: 20250115
  Serious: Yes (Other)
  Sender: CELLTRION
  Company Number: BR-CELLTRION INC.-2023BR021497

PATIENT

DRUGS (2)
  1. INFLIXIMAB-DYYB [Suspect]
     Active Substance: INFLIXIMAB-DYYB
     Indication: Crohn^s disease
     Dosage: 4 AMPOULES EVERY 8 WEEKS/4 AMPOULES EVERY 2 MONTHS
     Route: 042
     Dates: start: 20220923
  2. GABAPENTIN [Concomitant]
     Active Substance: GABAPENTIN
     Indication: Hydrocephalus

REACTIONS (9)
  - Mass excision [Recovered/Resolved]
  - Pseudogynaecomastia [Recovered/Resolved]
  - Decreased immune responsiveness [Recovered/Resolved]
  - Post procedural infection [Recovered/Resolved]
  - Arthralgia [Unknown]
  - Nasopharyngitis [Recovered/Resolved]
  - Product availability issue [Recovering/Resolving]
  - Therapy interrupted [Recovering/Resolving]
  - Intentional dose omission [Recovered/Resolved]

NARRATIVE: CASE EVENT DATE: 20231027
